FAERS Safety Report 10022198 (Version 1)
Quarter: 2014Q1

REPORT INFORMATION
  Report Type: Report from Study
  Country: AU (occurrence: AU)
  Receive Date: 20140319
  Receipt Date: 20140319
  Transmission Date: 20141002
  Serious: Yes (Other)
  Sender: FDA-Public Use
  Company Number: AU-GLAXOSMITHKLINE-Z0017409E

PATIENT
  Age: 56 Year
  Sex: Female
  Weight: 99 kg

DRUGS (3)
  1. DABRAFENIB [Suspect]
     Indication: MALIGNANT MELANOMA
     Dosage: 150MG TWICE PER DAY
     Route: 048
     Dates: start: 20120830
  2. PLACEBO [Suspect]
     Indication: MALIGNANT MELANOMA
     Dosage: 2MG PER DAY
     Route: 048
     Dates: start: 20120830
  3. LIGNOCAINE + ADRENALIN [Concomitant]
     Indication: ANAESTHESIA
     Dosage: 2ML SINGLE DOSE
     Route: 058
     Dates: start: 20130117, end: 20130117

REACTIONS (1)
  - Basal cell carcinoma [Recovered/Resolved]
